FAERS Safety Report 21945894 (Version 1)
Quarter: 2023Q1

REPORT INFORMATION
  Report Type: Spontaneous
  Country: US (occurrence: None)
  Receive Date: 20230202
  Receipt Date: 20230202
  Transmission Date: 20230418
  Serious: Yes (Hospitalization)
  Sender: FDA-Public Use
  Company Number: None

PATIENT
  Sex: Male

DRUGS (1)
  1. DROXIDOPA [Suspect]
     Active Substance: DROXIDOPA
     Indication: Parkinson^s disease
     Dosage: 100 MG ORAL??TAKE ONE CAPSULE (100 MG) BY MOUTH 3 TIMES DAILY.
     Route: 048
     Dates: start: 20210615

REACTIONS (2)
  - Therapy interrupted [None]
  - Hospitalisation [None]
